FAERS Safety Report 4591712-8 (Version None)
Quarter: 2005Q1

REPORT INFORMATION
  Report Type: 
  Country: None (occurrence: None)
  Receive Date: 20050222
  Receipt Date: 20050209
  Transmission Date: 20050727
  Serious: Yes (Other)
  Sender: FDA-Public Use
  Company Number: 2004119781

PATIENT
  Age: 32 Year
  Sex: Male
  Weight: 74 kg

DRUGS (10)
  1. CARDURA [Suspect]
     Indication: BLOOD PRESSURE INCREASED
     Dosage: 8 MG (4 MG, BID INTERVAL:  EVERY DAY),ORAL
     Route: 048
     Dates: start: 20040901
  2. ATORVASTATIN (ATORVASTATIN) [Concomitant]
  3. ATENOLOL [Concomitant]
  4. CYCLOSPORINE [Concomitant]
  5. MYCOPHENOLATE MOFETIL (MYCOPHENOLATE MOFETIL) [Concomitant]
  6. NIFEDIPINE [Concomitant]
  7. MINOXIDIL [Concomitant]
  8. FUROSEMIDE [Concomitant]
  9. SPIRONOLACTONE [Concomitant]
  10. PREDNISONE [Concomitant]

REACTIONS (4)
  - AZOOSPERMIA [None]
  - INFERTILITY MALE [None]
  - SPERM COUNT ZERO [None]
  - SPERMATOZOA PROGRESSIVE MOTILITY DECREASED [None]
